FAERS Safety Report 9128011 (Version 1)
Quarter: 2013Q1

REPORT INFORMATION
  Report Type: Spontaneous
  Country: ES (occurrence: ES)
  Receive Date: 20130228
  Receipt Date: 20130228
  Transmission Date: 20140127
  Serious: Yes (Other)
  Sender: FDA-Public Use
  Company Number: ES-JNJFOC-20130213235

PATIENT
  Sex: 0

DRUGS (2)
  1. TOPIRAMATE [Suspect]
     Indication: MIGRAINE PROPHYLAXIS
     Route: 048
  2. FLUNARIZINE [Suspect]
     Indication: MIGRAINE
     Route: 065

REACTIONS (3)
  - Drug abuse [Unknown]
  - Migraine [Unknown]
  - Adverse drug reaction [Unknown]
